FAERS Safety Report 5075825-2 (Version None)
Quarter: 2006Q3

REPORT INFORMATION
  Report Type: 
  Country: None (occurrence: None)
  Receive Date: 20060809
  Receipt Date: 20060801
  Transmission Date: 20061208
  Serious: Yes (Other)
  Sender: FDA-Public Use
  Company Number: GB-GLAXOSMITHKLINE-B0433499A

PATIENT
  Sex: Male

DRUGS (2)
  1. COMBIVIR [Suspect]
     Dates: start: 20060327, end: 20060629
  2. KALETRA [Suspect]
     Dates: start: 20060327, end: 20060629

REACTIONS (4)
  - GASTRIC DISORDER [None]
  - OESOPHAGEAL ATRESIA [None]
  - TRISOMY 18 [None]
  - VENTRICULAR SEPTAL DEFECT [None]
